FAERS Safety Report 13582508 (Version 1)
Quarter: 2017Q2

REPORT INFORMATION
  Report Type: Spontaneous
  Country: FR (occurrence: FR)
  Receive Date: 20170525
  Receipt Date: 20170525
  Transmission Date: 20170830
  Serious: Yes (Death, Congenital Anomaly)
  Sender: FDA-Public Use
  Company Number: FR-PFIZER INC-2017223521

PATIENT
  Sex: Female

DRUGS (2)
  1. EFFEXOR LP [Suspect]
     Active Substance: VENLAFAXINE HYDROCHLORIDE
     Dosage: 37.5 MG, DAILY
     Route: 064
     Dates: end: 20131016
  2. CODOLIPRANE [Suspect]
     Active Substance: ACETAMINOPHEN\CODEINE PHOSPHATE
     Dosage: 1 DF, UNK
     Route: 064
     Dates: end: 20131218

REACTIONS (4)
  - Maternal exposure during pregnancy [Fatal]
  - Pulmonary valve stenosis [Fatal]
  - Abortion induced [Fatal]
  - Ventricular hypoplasia [Fatal]

NARRATIVE: CASE EVENT DATE: 2013
